FAERS Safety Report 7842436-2 (Version None)
Quarter: 2011Q4

REPORT INFORMATION
  Report Type: 
  Country: None (occurrence: None)
  Receive Date: 20111021
  Receipt Date: 20111021
  Transmission Date: 20120403
  Serious: No
  Sender: FDA-Public Use
  Company Number: None

PATIENT
  Sex: Female
  Weight: 133 kg

DRUGS (2)
  1. FLONASE [Suspect]
  2. FLUTICASONE PROPIONATE [Suspect]
     Indication: COUGH
     Dosage: UNKNOWN
     Route: 045

REACTIONS (2)
  - DRUG INEFFECTIVE [None]
  - PRODUCT SUBSTITUTION ISSUE [None]
